FAERS Safety Report 8359686-1 (Version None)
Quarter: 2012Q2

REPORT INFORMATION
  Report Type: 
  Country: None (occurrence: None)
  Receive Date: 20120514
  Receipt Date: 20120514
  Transmission Date: 20120825
  Serious: Yes (Hospitalization)
  Sender: FDA-Public Use
  Company Number: None

PATIENT
  Age: 53 Year
  Sex: Male
  Weight: 74.8435 kg

DRUGS (10)
  1. ZOLPIDEM [Concomitant]
  2. PROPOFOL [Suspect]
     Indication: ELECTROCONVULSIVE THERAPY
     Dosage: 70MG IV
     Route: 042
     Dates: start: 20120322
  3. ASPIRIN [Concomitant]
  4. LORAZEPAM [Concomitant]
  5. PERPHENAZINE [Concomitant]
  6. IBUPROFEN [Concomitant]
  7. SUCCINYLCHOLINE CHLORIDE [Suspect]
     Indication: ELECTROCONVULSIVE THERAPY
     Dosage: 100MG IV
     Route: 042
     Dates: start: 20120322
  8. DOCUSATE SODIUM [Concomitant]
  9. FLUVOXAMINE MALEATE [Concomitant]
  10. TAMSULOSIN HCL [Concomitant]

REACTIONS (5)
  - TACHYCARDIA [None]
  - PYREXIA [None]
  - HYPERTHERMIA MALIGNANT [None]
  - CARDIO-RESPIRATORY ARREST [None]
  - CHILLS [None]
